FAERS Safety Report 8161345-5 (Version None)
Quarter: 2012Q1

REPORT INFORMATION
  Report Type: 
  Country: None (occurrence: None)
  Receive Date: 20120224
  Receipt Date: 20120214
  Transmission Date: 20120608
  Serious: Yes (Hospitalization)
  Sender: FDA-Public Use
  Company Number: FR-JNJFOC-20120101112

PATIENT
  Sex: Female
  Weight: 100.3 kg

DRUGS (7)
  1. PLAVIX [Concomitant]
     Indication: ANTICOAGULANT THERAPY
  2. PALIPERIDONE PALMITATE [Suspect]
     Indication: SCHIZOPHRENIA
     Route: 030
     Dates: start: 20111116
  3. DEPAKENE [Concomitant]
     Indication: AFFECT LABILITY
  4. CLONAZEPAM [Concomitant]
     Indication: INSOMNIA
  5. TERCIAN [Concomitant]
     Indication: ANXIETY
     Dates: end: 20111228
  6. PRAVASTATIN [Concomitant]
     Indication: HYPERCHOLESTEROLAEMIA
  7. METFORMIN HCL [Concomitant]
     Indication: DIABETES MELLITUS

REACTIONS (1)
  - BACK PAIN [None]
